FAERS Safety Report 17769238 (Version 1)
Quarter: 2020Q2

REPORT INFORMATION
  Report Type: Report from Study
  Country: MX (occurrence: MX)
  Receive Date: 20200512
  Receipt Date: 20200512
  Transmission Date: 20200714
  Serious: Yes (Hospitalization)
  Sender: FDA-Public Use
  Company Number: MX-ROCHE-2596784

PATIENT
  Age: 33 Year
  Sex: Female
  Weight: 86 kg

DRUGS (1)
  1. ROACTEMRA [Suspect]
     Active Substance: TOCILIZUMAB
     Indication: RHEUMATOID ARTHRITIS
     Route: 042
     Dates: start: 20190411

REACTIONS (2)
  - Anal abscess [Recovered/Resolved]
  - Rectal abscess [Recovered/Resolved]

NARRATIVE: CASE EVENT DATE: 20200201
